FAERS Safety Report 24147435 (Version 2)
Quarter: 2024Q3

REPORT INFORMATION
  Report Type: Spontaneous
  Country: AR (occurrence: AR)
  Receive Date: 20240729
  Receipt Date: 20240809
  Transmission Date: 20241017
  Serious: Yes (Other)
  Sender: PFIZER
  Company Number: AR-PFIZER INC-202400223879

PATIENT
  Age: 86 Year
  Sex: Female

DRUGS (2)
  1. IBRANCE [Suspect]
     Active Substance: PALBOCICLIB
     Indication: Breast cancer metastatic
     Dosage: 75 MG, SCHEME 3X1
     Dates: start: 20170710, end: 20240717
  2. PALBOCICLIB [Suspect]
     Active Substance: PALBOCICLIB
     Dosage: 75 MG
     Dates: start: 20240717

REACTIONS (11)
  - Myocardial infarction [Unknown]
  - Gait disturbance [Unknown]
  - Fatigue [Unknown]
  - Dysphagia [Unknown]
  - Glossitis [Unknown]
  - Stomatitis [Unknown]
  - Throat lesion [Unknown]
  - Mouth swelling [Unknown]
  - Throat irritation [Unknown]
  - Dysphonia [Unknown]
  - Neoplasm progression [Not Recovered/Not Resolved]

NARRATIVE: CASE EVENT DATE: 20240701
